FAERS Safety Report 7457166-9 (Version None)
Quarter: 2011Q2

REPORT INFORMATION
  Report Type: 
  Country: None (occurrence: None)
  Receive Date: 20110504
  Receipt Date: 20110422
  Transmission Date: 20111010
  Serious: Yes (Other)
  Sender: FDA-Public Use
  Company Number: SI-JNJFOC-20110310592

PATIENT

DRUGS (4)
  1. CAELYX [Suspect]
     Indication: PRODUCT USED FOR UNKNOWN INDICATION
     Route: 042
  2. SOLU-MEDROL [Concomitant]
     Route: 065
  3. TAVEGIL [Concomitant]
     Route: 065
  4. OXYGEN [Concomitant]
     Route: 045

REACTIONS (3)
  - LOSS OF CONSCIOUSNESS [None]
  - INFUSION RELATED REACTION [None]
  - PRODUCT QUALITY ISSUE [None]
